FAERS Safety Report 5146493-6 (Version None)
Quarter: 2006Q4

REPORT INFORMATION
  Report Type: 
  Country: None (occurrence: None)
  Receive Date: 20061102
  Receipt Date: 20061024
  Transmission Date: 20070319
  Serious: Yes (Other)
  Sender: FDA-Public Use
  Company Number: 2006129845

PATIENT
  Sex: Male

DRUGS (1)
  1. LISTERINE (MENTHOL, METHYL SALICYLATE, EUCALYPTOL, THYMOL) [Suspect]
     Dosage: 1/2 OF A ONE LITER BOTTLE, ORAL
     Route: 048

REACTIONS (8)
  - BURNING SENSATION MUCOSAL [None]
  - BURNS THIRD DEGREE [None]
  - FEELING ABNORMAL [None]
  - INCORRECT ROUTE OF DRUG ADMINISTRATION [None]
  - INTENTIONAL DRUG MISUSE [None]
  - ORAL DISCOMFORT [None]
  - ORAL MUCOSAL BLISTERING [None]
  - TONGUE ULCERATION [None]
